FAERS Safety Report 7267290-1 (Version None)
Quarter: 2011Q1

REPORT INFORMATION
  Report Type: 
  Country: None (occurrence: None)
  Receive Date: 20110201
  Receipt Date: 20110128
  Transmission Date: 20110831
  Serious: Yes (Other)
  Sender: FDA-Public Use
  Company Number: IT-ABBOTT-11P-083-0701086-00

PATIENT
  Sex: Male

DRUGS (2)
  1. VASERETIC [Concomitant]
     Indication: PRODUCT USED FOR UNKNOWN INDICATION
     Route: 048
  2. FULCROSUPRA [Suspect]
     Indication: HYPERLIPIDAEMIA
     Route: 048
     Dates: start: 20101001, end: 20101011

REACTIONS (1)
  - HAEMOLYTIC ANAEMIA [None]
